FAERS Safety Report 19183748 (Version 1)
Quarter: 2021Q2

REPORT INFORMATION
  Report Type: Report from Study
  Country: US (occurrence: US)
  Receive Date: 20210427
  Receipt Date: 20210427
  Transmission Date: 20210717
  Serious: Yes (Hospitalization)
  Sender: FDA-Public Use
  Company Number: US-TEVA-2021-US-1905385

PATIENT
  Age: 44 Year
  Sex: Female
  Weight: 73.8 kg

DRUGS (27)
  1. ETOPOSIDE. [Suspect]
     Active Substance: ETOPOSIDE
     Indication: ACUTE LYMPHOCYTIC LEUKAEMIA RECURRENT
     Dosage: 50 MG/M2 DAILY; DAYS 1?4 Q28 DAYS
     Route: 042
     Dates: start: 20210119, end: 20210122
  2. URSODIOL. [Concomitant]
     Active Substance: URSODIOL
     Indication: PROPHYLAXIS
  3. ONDANSETRON [Concomitant]
     Active Substance: ONDANSETRON
     Indication: VOMITING
  4. MERCAPTOPURINE. [Concomitant]
     Active Substance: MERCAPTOPURINE
  5. MELATONIN [Concomitant]
     Active Substance: MELATONIN
  6. VANCOMYCIN [Concomitant]
     Active Substance: VANCOMYCIN
  7. PROCHLORPERAZINE. [Concomitant]
     Active Substance: PROCHLORPERAZINE
     Indication: NAUSEA
  8. VINCRISTINE SULFATE. [Suspect]
     Active Substance: VINCRISTINE SULFATE
     Indication: ACUTE LYMPHOCYTIC LEUKAEMIA RECURRENT
     Dosage: .4 MG/M2 DAILY; DAYS 1?4, Q28 DAYS
     Route: 042
     Dates: start: 20210119, end: 20210122
  9. LEVOFLOXACIN. [Concomitant]
     Active Substance: LEVOFLOXACIN
  10. GRANISETRON [Concomitant]
     Active Substance: GRANISETRON
     Indication: NAUSEA
  11. OCULAR LUBRICANT [Concomitant]
     Indication: DRY EYE
  12. ONDANSETRON [Concomitant]
     Active Substance: ONDANSETRON
     Indication: NAUSEA
  13. CYCLOPHOSPHAMIDE. [Suspect]
     Active Substance: CYCLOPHOSPHAMIDE
     Indication: ACUTE LYMPHOCYTIC LEUKAEMIA RECURRENT
     Dosage: 750 MG/M2 DAILY; DAY 05, Q28 DAYS
     Route: 042
     Dates: start: 20210124, end: 20210124
  14. SODIUM CHLORIDE. [Concomitant]
     Active Substance: SODIUM CHLORIDE
     Indication: NASAL DRYNESS
  15. PREDNISONE. [Concomitant]
     Active Substance: PREDNISONE
  16. VENLAFAXINE [Concomitant]
     Active Substance: VENLAFAXINE HYDROCHLORIDE
  17. LORATADINE. [Concomitant]
     Active Substance: LORATADINE
     Indication: HYPERSENSITIVITY
  18. GABAPENTIN. [Concomitant]
     Active Substance: GABAPENTIN
  19. PROCHLORPERAZINE. [Concomitant]
     Active Substance: PROCHLORPERAZINE
     Indication: VOMITING
  20. METHOTREXATE. [Concomitant]
     Active Substance: METHOTREXATE
  21. DOXORUBICIN HCL [Suspect]
     Active Substance: DOXORUBICIN HYDROCHLORIDE
     Indication: ACUTE LYMPHOCYTIC LEUKAEMIA RECURRENT
     Dosage: 10 MG/M2 DAILY; DAYS 1?4, Q28 DAYS
     Route: 042
     Dates: start: 20210119, end: 20210122
  22. GRANISETRON [Concomitant]
     Active Substance: GRANISETRON
     Indication: VOMITING
  23. ACYCLOVIR. [Concomitant]
     Active Substance: ACYCLOVIR
  24. CLOTRIMAZOLE. [Concomitant]
     Active Substance: CLOTRIMAZOLE
  25. FAMOTIDINE. [Concomitant]
     Active Substance: FAMOTIDINE
     Indication: ABDOMINAL DISCOMFORT
  26. LIDOCAINE;PRILOCAINE [Concomitant]
  27. ACETAMINOPHEN. [Concomitant]
     Active Substance: ACETAMINOPHEN
     Indication: HEADACHE

REACTIONS (1)
  - Febrile neutropenia [Recovered/Resolved]

NARRATIVE: CASE EVENT DATE: 20210130
